FAERS Safety Report 7797517-9 (Version None)
Quarter: 2011Q4

REPORT INFORMATION
  Report Type: 
  Country: None (occurrence: None)
  Receive Date: 20111003
  Receipt Date: 20110928
  Transmission Date: 20120403
  Serious: Yes (Hospitalization)
  Sender: FDA-Public Use
  Company Number: 2005-128270-NL

PATIENT
  Age: 74 Year
  Sex: Female

DRUGS (6)
  1. MIRTAZAPINE [Suspect]
     Indication: DEPRESSION
     Dosage: 45 MG; QD; PO, 60 MG; QD; PO
     Route: 048
     Dates: start: 20041124, end: 20050407
  2. MIRTAZAPINE [Suspect]
     Indication: DEPRESSION
     Dosage: 45 MG; QD; PO, 60 MG; QD; PO
     Route: 048
     Dates: start: 20050408, end: 20050414
  3. ZOCOR [Concomitant]
  4. LORAZEPAM [Concomitant]
  5. INDAPAMIDE [Suspect]
     Indication: PRODUCT USED FOR UNKNOWN INDICATION
     Dosage: 1.5 MG; QD; PO
     Route: 048
     Dates: end: 20050414
  6. OLMESARTAN MEDOXOMIL [Suspect]
     Indication: PRODUCT USED FOR UNKNOWN INDICATION
     Dosage: 1 DF; QD; PO
     Route: 048
     Dates: end: 20050414

REACTIONS (4)
  - ABDOMINAL PAIN [None]
  - PRESYNCOPE [None]
  - CONSTIPATION [None]
  - INAPPROPRIATE ANTIDIURETIC HORMONE SECRETION [None]
